FAERS Safety Report 6677358-6 (Version None)
Quarter: 2010Q2

REPORT INFORMATION
  Report Type: 
  Country: None (occurrence: None)
  Receive Date: 20100412
  Receipt Date: 20100402
  Transmission Date: 20101027
  Serious: Yes (Other)
  Sender: FDA-Public Use
  Company Number: JP-PFIZER INC-2010043414

PATIENT
  Age: 61 Year
  Sex: Male

DRUGS (4)
  1. LIPITOR [Suspect]
     Route: 048
     Dates: end: 20091201
  2. ZOLOFT [Suspect]
     Route: 048
     Dates: start: 20080801
  3. CRESTOR [Concomitant]
     Dates: end: 20091201
  4. AMOXAN [Concomitant]

REACTIONS (1)
  - BLOOD CREATINE PHOSPHOKINASE INCREASED [None]
